FAERS Safety Report 6652760-7 (Version None)
Quarter: 2010Q1

REPORT INFORMATION
  Report Type: 
  Country: None (occurrence: None)
  Receive Date: 20100326
  Receipt Date: 20100316
  Transmission Date: 20100710
  Serious: Yes (Hospitalization)
  Sender: FDA-Public Use
  Company Number: GXKR2010GB03134

PATIENT
  Age: 56 Year
  Sex: Female
  Weight: 58.2 kg

DRUGS (13)
  1. OXALIPLATIN [Suspect]
     Indication: COLON CANCER
     Dosage: 210 MG, UNK
     Route: 042
     Dates: start: 20100108
  2. OXALIPLATIN [Suspect]
     Route: 042
  3. XELODA [Suspect]
     Indication: COLON CANCER
     Dosage: 1500 MG, BID
     Route: 048
     Dates: start: 20100108, end: 20100114
  4. DULOXETINE HYDROCHLORIDE [Concomitant]
  5. METOCLOPRAMIDE [Concomitant]
     Indication: ANTIEMETIC SUPPORTIVE CARE
     Dosage: 10 MG, TID
     Route: 048
     Dates: start: 20100108, end: 20100114
  6. OMEPRAZOLE [Concomitant]
  7. ONDANSETRON [Concomitant]
     Indication: ANTIEMETIC SUPPORTIVE CARE
     Dosage: 8 MG, UNK
     Route: 042
     Dates: start: 20100108
  8. ONDANSETRON [Concomitant]
     Dosage: 8 MG, BID
     Route: 048
     Dates: start: 20100108
  9. PROMETHAZINE HCL [Concomitant]
  10. PROMETHAZINE [Concomitant]
  11. QUININE [Concomitant]
  12. RAMIPRIL [Concomitant]
  13. TRAMADOL [Concomitant]

REACTIONS (1)
  - ENCEPHALOPATHY [None]
